FAERS Safety Report 12667254 (Version 1)
Quarter: 2016Q3

REPORT INFORMATION
  Report Type: Spontaneous
  Country: US (occurrence: None)
  Receive Date: 20160818
  Receipt Date: 20160818
  Transmission Date: 20161109
  Serious: Yes (Disabling, Other)
  Sender: FDA-Public Use
  Company Number: None

PATIENT
  Age: 38 Year
  Sex: Female
  Weight: 160.12 kg

DRUGS (7)
  1. FIBER SUPPLEMENT [Concomitant]
  2. LEVOTHYROXINE. [Concomitant]
     Active Substance: LEVOTHYROXINE
  3. CREON [Concomitant]
     Active Substance: PANCRELIPASE AMYLASE\PANCRELIPASE LIPASE\PANCRELIPASE PROTEASE
  4. DULOXETINE DELAYED-RELEASE CAPSULES, USP [Suspect]
     Active Substance: DULOXETINE HYDROCHLORIDE
     Indication: PAIN
     Dosage: 1 PILL
     Route: 048
     Dates: start: 20160710, end: 20160710
  5. SPRINTEC [Concomitant]
     Active Substance: ETHINYL ESTRADIOL\NORGESTIMATE
  6. MULTI-VITAMIN [Concomitant]
     Active Substance: .ALPHA.-TOCOPHEROL ACETATE, DL-\ASCORBIC ACID\CYANOCOBALAMIN\FLUORIDE ION\FOLIC ACID\NIACIN\PYRIDOXINE\RIBOFLAVIN\THIAMINE\VITAMIN A\VITAMIN D
  7. PROBIOTIC [Concomitant]
     Active Substance: PROBIOTICS NOS

REACTIONS (14)
  - Tremor [None]
  - Insomnia [None]
  - Vertigo [None]
  - Pyrexia [None]
  - Palpitations [None]
  - Nausea [None]
  - Decreased appetite [None]
  - Dyspnoea [None]
  - Dizziness [None]
  - Disorientation [None]
  - Fatigue [None]
  - Chills [None]
  - Headache [None]
  - Pain [None]

NARRATIVE: CASE EVENT DATE: 20160710
